FAERS Safety Report 14255424 (Version 5)
Quarter: 2019Q4

REPORT INFORMATION
  Report Type: Spontaneous
  Country: US (occurrence: US)
  Receive Date: 20171206
  Receipt Date: 20191004
  Transmission Date: 20200122
  Serious: Yes (Other)
  Sender: FDA-Public Use
  Company Number: US-LEXICON PHARMACEUTICALS, INC-17-1606-01220

PATIENT
  Sex: Male

DRUGS (9)
  1. VITAMIN A [Concomitant]
     Active Substance: VITAMIN A
  2. SYNTHROID [Concomitant]
     Active Substance: LEVOTHYROXINE SODIUM
     Route: 048
  3. MILK THISTLE EXTRACT [Concomitant]
     Active Substance: DIETARY SUPPLEMENT\HERBALS\MILK THISTLE
  4. TELOTRISTAT ETHYL [Suspect]
     Active Substance: TELOTRISTAT ETHYL
     Indication: CARCINOID SYNDROME
     Route: 048
     Dates: start: 20170309
  5. CBD OIL [Concomitant]
     Active Substance: CANNABIDIOL\HERBALS
     Route: 048
  6. DANDELION ROOT [Concomitant]
  7. SANDOSTATIN LAR DEPOT [Concomitant]
     Active Substance: OCTREOTIDE ACETATE
     Dosage: SANDOSTATIN 60 MG GIVEN ONE TIME MONTHLY IN TWO 30 MG INJECTIONS
  8. ASPIRIN. [Concomitant]
     Active Substance: ASPIRIN
  9. VITAMIN D3 [Concomitant]
     Active Substance: CHOLECALCIFEROL

REACTIONS (18)
  - White blood cell count decreased [Not Recovered/Not Resolved]
  - Fatigue [Unknown]
  - Influenza like illness [Unknown]
  - Asthenia [Unknown]
  - Diarrhoea [Unknown]
  - Contusion [Unknown]
  - Metastases to bone [Unknown]
  - Cough [Unknown]
  - Bone marrow failure [Unknown]
  - Varices oesophageal [Not Recovered/Not Resolved]
  - Hepatic cirrhosis [Not Recovered/Not Resolved]
  - Flushing [Unknown]
  - Weight decreased [Recovering/Resolving]
  - Arthritis [Unknown]
  - Decreased appetite [Unknown]
  - Metastases to abdominal cavity [Unknown]
  - Portal hypertension [Unknown]
  - Back pain [Recovering/Resolving]

NARRATIVE: CASE EVENT DATE: 2017
